FAERS Safety Report 24525450 (Version 3)
Quarter: 2024Q4

REPORT INFORMATION
  Report Type: Spontaneous
  Country: PT (occurrence: PT)
  Receive Date: 20241020
  Receipt Date: 20241102
  Transmission Date: 20250114
  Serious: Yes (Life-Threatening, Hospitalization, Other)
  Sender: AUROBINDO
  Company Number: PT-PFIZER INC-202400268614

PATIENT
  Age: 80 Year
  Sex: Male

DRUGS (12)
  1. CASPOFUNGIN [Suspect]
     Active Substance: CASPOFUNGIN
     Indication: Fungal endocarditis
     Dosage: UNK
     Route: 065
  2. FLUCONAZOLE [Suspect]
     Active Substance: FLUCONAZOLE
     Indication: Fungal endocarditis
     Dosage: UNK
     Route: 065
  3. CEFTRIAXONE [Suspect]
     Active Substance: CEFTRIAXONE
     Indication: Evidence based treatment
     Dosage: UNK
     Route: 065
  4. VANCOMYCIN [Suspect]
     Active Substance: VANCOMYCIN
     Indication: Candida infection
     Dosage: UNK
     Route: 065
  5. VANCOMYCIN [Suspect]
     Active Substance: VANCOMYCIN
     Indication: Fungal endocarditis
  6. VANCOMYCIN [Suspect]
     Active Substance: VANCOMYCIN
     Indication: Evidence based treatment
  7. VORICONAZOLE [Suspect]
     Active Substance: VORICONAZOLE
     Indication: Fungal endocarditis
     Dosage: UNK
     Route: 065
  8. GENTAMICIN [Suspect]
     Active Substance: GENTAMICIN
     Indication: Evidence based treatment
     Dosage: UNK
     Route: 065
  9. ITRACONAZOLE [Concomitant]
     Active Substance: ITRACONAZOLE
     Indication: Fungal endocarditis
     Dosage: UNK
     Route: 065
  10. FLUCYTOSINE [Concomitant]
     Active Substance: FLUCYTOSINE
     Indication: Product used for unknown indication
     Dosage: UNK
     Route: 065
  11. ANIDULAFUNGIN [Concomitant]
     Active Substance: ANIDULAFUNGIN
     Indication: Fungal endocarditis
     Dosage: UNK
     Route: 065
  12. AMPHOTERICIN B [Concomitant]
     Active Substance: AMPHOTERICIN B
     Indication: Fungal endocarditis
     Dosage: UNK
     Route: 065

REACTIONS (7)
  - Fungal endocarditis [Recovered/Resolved]
  - Toxicity to various agents [Recovered/Resolved]
  - Nosocomial infection [Recovered/Resolved]
  - Acute kidney injury [Unknown]
  - Drug ineffective [Recovered/Resolved]
  - Drug resistance [Unknown]
  - Disease progression [Unknown]
